FAERS Safety Report 11198052 (Version 1)
Quarter: 2015Q2

REPORT INFORMATION
  Report Type: Spontaneous
  Country: GB (occurrence: GB)
  Receive Date: 20150617
  Receipt Date: 20150617
  Transmission Date: 20150821
  Serious: Yes (Other)
  Sender: FDA-Public Use
  Company Number: PHHY2015GB068430

PATIENT
  Age: 7 Year
  Sex: Male
  Weight: 25.4 kg

DRUGS (2)
  1. MELATONIN [Concomitant]
     Active Substance: MELATONIN
     Indication: PRODUCT USED FOR UNKNOWN INDICATION
     Route: 065
  2. CLONIDINE. [Suspect]
     Active Substance: CLONIDINE
     Indication: ATTENTION DEFICIT/HYPERACTIVITY DISORDER
     Dosage: 17.5 ML, QD AT MORNING
     Route: 048
     Dates: start: 20141209

REACTIONS (3)
  - Somnolence [Recovered/Resolved]
  - Hypersomnia [Recovered/Resolved]
  - Depressed level of consciousness [Recovered/Resolved]

NARRATIVE: CASE EVENT DATE: 20150514
